FAERS Safety Report 10230220 (Version 1)
Quarter: 2014Q2

REPORT INFORMATION
  Report Type: Spontaneous
  Country: US (occurrence: None)
  Receive Date: 20140610
  Receipt Date: 20140610
  Transmission Date: 20141212
  Serious: Yes (Disabling)
  Sender: FDA-Public Use
  Company Number: None

PATIENT
  Age: 45 Year
  Sex: Female
  Weight: 83.92 kg

DRUGS (1)
  1. PAROXETINE [Suspect]
     Indication: INSOMNIA
     Dosage: 1 PILL, ONCE DAILY, TAKEN BY MOUTH
     Route: 048
     Dates: start: 20140516, end: 20140528

REACTIONS (9)
  - Drug withdrawal syndrome [None]
  - Anxiety [None]
  - Hyperhidrosis [None]
  - Influenza like illness [None]
  - Lethargy [None]
  - Abnormal dreams [None]
  - Diarrhoea [None]
  - Fear [None]
  - Drug ineffective [None]
